FAERS Safety Report 16972818 (Version 1)
Quarter: 2019Q4

REPORT INFORMATION
  Report Type: Spontaneous
  Country: US (occurrence: US)
  Receive Date: 20191030
  Receipt Date: 20191030
  Transmission Date: 20200122
  Serious: Yes (Disabling)
  Sender: FDA-Public Use
  Company Number: US-ACCORD-106065

PATIENT
  Age: 43 Year
  Sex: Female

DRUGS (2)
  1. ESCITALOPRAM ACCORD [Suspect]
     Active Substance: ESCITALOPRAM OXALATE
     Indication: PANIC DISORDER
     Route: 048
     Dates: start: 20181215, end: 20190120
  2. LAMOTRIGINE. [Concomitant]
     Active Substance: LAMOTRIGINE

REACTIONS (6)
  - Panic attack [Recovered/Resolved]
  - Nausea [Recovered/Resolved]
  - Paraesthesia [Recovered/Resolved]
  - Chills [Recovered/Resolved]
  - Product substitution issue [Unknown]
  - Headache [Recovered/Resolved]
